FAERS Safety Report 17499312 (Version 2)
Quarter: 2020Q2

REPORT INFORMATION
  Report Type: Spontaneous
  Country: HR (occurrence: HR)
  Receive Date: 20200304
  Receipt Date: 20200411
  Transmission Date: 20200713
  Serious: Yes (Death, Life-Threatening, Hospitalization, Disabling, Other)
  Sender: FDA-Public Use
  Company Number: HR-CELLTRION INC.-2020HR020046

PATIENT

DRUGS (35)
  1. CYCLOPHOSPHAMIDE. [Suspect]
     Active Substance: CYCLOPHOSPHAMIDE
     Indication: DIFFUSE LARGE B-CELL LYMPHOMA STAGE IV
     Route: 065
  2. VINCRISTINE [Suspect]
     Active Substance: VINCRISTINE
     Dosage: FIVE CYCLES (R-CHOEP PROTOCOL)
  3. METHYLPREDNISOLONE. [Suspect]
     Active Substance: METHYLPREDNISOLONE
     Indication: DIFFUSE LARGE B-CELL LYMPHOMA STAGE IV
     Dosage: 3 CYCLES (R-CHEVP PROTOCOL)
     Route: 065
  4. AZACITIDINE. [Suspect]
     Active Substance: AZACITIDINE
     Indication: ACUTE MYELOID LEUKAEMIA
     Dosage: THREE CYCLES
  5. CARVELOL [Concomitant]
     Active Substance: CARVEDILOL
     Dosage: UNK
  6. TRITACE [Concomitant]
     Active Substance: RAMIPRIL
     Dosage: UNK
  7. DOXORUBICIN [Suspect]
     Active Substance: DOXORUBICIN
     Indication: B-CELL LYMPHOMA
     Dosage: UNK
     Route: 065
  8. VINCRISTINE [Suspect]
     Active Substance: VINCRISTINE
     Indication: DIFFUSE LARGE B-CELL LYMPHOMA STAGE IV
     Dosage: UNK
     Route: 065
  9. VINBLASTINE [Suspect]
     Active Substance: VINBLASTINE
     Indication: B-CELL LYMPHOMA
     Dosage: UNK
     Route: 065
  10. CYCLOPHOSPHAMIDE. [Suspect]
     Active Substance: CYCLOPHOSPHAMIDE
     Dosage: FIVE CYCLES (R-CHOEP PROTOCOL) AND THREE CYCLES (R-CHEVP PROTOCOL)
  11. ETOPOSIDE. [Suspect]
     Active Substance: ETOPOSIDE
     Indication: DIFFUSE LARGE B-CELL LYMPHOMA STAGE IV
     Dosage: 3 CYCLES (R-CHEVP PROTOCOL)
     Route: 065
  12. VINBLASTIN [Suspect]
     Active Substance: VINBLASTINE
     Indication: DIFFUSE LARGE B-CELL LYMPHOMA STAGE IV
     Dosage: THREE CYCLES (R-CHEVP PROTOCOL)
  13. THIOGUANINE [Suspect]
     Active Substance: THIOGUANINE
     Indication: REFRACTORY ANAEMIA WITH AN EXCESS OF BLASTS
     Dosage: UNK
  14. FLUCONAZOLE. [Suspect]
     Active Substance: FLUCONAZOLE
     Indication: ANTIBIOTIC PROPHYLAXIS
     Dosage: UNK
  15. GELCLAIR [ENOXOLONE;HYALURONATE SODIUM;POVIDONE] [Concomitant]
     Dosage: UNK
  16. RITUXIMAB (UNKNOWN) [Suspect]
     Active Substance: RITUXIMAB
     Indication: DIFFUSE LARGE B-CELL LYMPHOMA STAGE IV
     Dosage: 3 CYCLES (R-CHEVP PROTOCOL)
     Route: 065
  17. DOXIL [Suspect]
     Active Substance: DOXORUBICIN HYDROCHLORIDE
     Dosage: LIPOSOMAL INFUSION THREE CYCLES (R-CHEVP PROTOCOL)
     Route: 042
  18. METHYLDIGOXIN [Concomitant]
     Active Substance: METILDIGOXIN
     Route: 065
  19. RITUXIMAB (UNKNOWN) [Suspect]
     Active Substance: RITUXIMAB
     Dosage: 5 CYCLES (R-CHEVP PROTOCOL)
     Route: 065
  20. CIPROFLOXACIN. [Suspect]
     Active Substance: CIPROFLOXACIN
     Dosage: 5 CYCLES ( R-CHOEP PROTOCOL)
  21. ALDACTONE [Concomitant]
     Active Substance: SPIRONOLACTONE
     Dosage: UNK
  22. DIFLUCAN [Concomitant]
     Active Substance: FLUCONAZOLE
     Dosage: UNK
  23. CURASEPT [CHLORHEXIDINE GLUCONATE] [Concomitant]
     Dosage: MOUTHWASH THREE TIMES A DAY
  24. DOLOKAIN [Concomitant]
     Dosage: UNK
  25. FURSEMID [FUROSEMIDE] [Concomitant]
     Active Substance: FUROSEMIDE
     Dosage: UNK
  26. ETOPOSIDE. [Suspect]
     Active Substance: ETOPOSIDE
     Dosage: FIVE CYCLES (R-CHOEP PROTOCOL) AND THREE CYCLES (R-CHEVP PROTOCOL)
  27. ACYCLOVIR [ACICLOVIR] [Suspect]
     Active Substance: ACYCLOVIR
     Indication: ANTIBIOTIC PROPHYLAXIS
     Dosage: UNK
  28. DOXORUBICIN HCL [Suspect]
     Active Substance: DOXORUBICIN HYDROCHLORIDE
     Indication: DIFFUSE LARGE B-CELL LYMPHOMA STAGE IV
     Dosage: FIVE CYCLES (R-CHOEP PROTOCOL) AND THREE CYCLES (R-CHEVP PROTOCOL)
  29. CIPROFLOXACIN. [Suspect]
     Active Substance: CIPROFLOXACIN
     Indication: ANTIBIOTIC PROPHYLAXIS
     Dosage: 3 CYCLES (R-CHEVP PROTOCOL)
     Route: 065
  30. ENDOXAN [CYCLOPHOSPHAMIDE MONOHYDRATE] [Suspect]
     Active Substance: CYCLOPHOSPHAMIDE
     Dosage: 3 CYCLES (R-CHEVP PROTOCOL)
     Route: 065
  31. BELODERM [BETAMETHASONE] [Concomitant]
     Dosage: UNK
  32. DIFFLAM [Concomitant]
     Active Substance: BENZYDAMINE HYDROCHLORIDE
     Route: 065
  33. RITUXIMAB (UNKNOWN) [Suspect]
     Active Substance: RITUXIMAB
     Dosage: FIVE CYCLES (R-CHOEP PROTOCOL) AND THREE CYCLES (R-CHEVP PROTOCOL)
  34. METHYLPREDNISOLONE. [Suspect]
     Active Substance: METHYLPREDNISOLONE
     Dosage: FIVE CYCLES (R-CHOEP PROTOCOL) AND THREE CYCLES (R-CHEVP PROTOCOL)
  35. CONTROLOC [Concomitant]
     Active Substance: PANTOPRAZOLE SODIUM
     Dosage: UNK

REACTIONS (13)
  - Staphylococcal sepsis [Fatal]
  - Myelodysplastic syndrome [Unknown]
  - Sinusitis [Fatal]
  - Refractory anaemia with an excess of blasts [Unknown]
  - Neutropenia [Unknown]
  - Toxic neuropathy [Unknown]
  - Acute myeloid leukaemia [Unknown]
  - Pancytopenia [Unknown]
  - Mouth ulceration [Unknown]
  - Aspergillus infection [Fatal]
  - Thrombocytopenia [Unknown]
  - Congestive cardiomyopathy [Unknown]
  - Leukaemia [Unknown]
